FAERS Safety Report 6617488-8 (Version None)
Quarter: 2010Q1

REPORT INFORMATION
  Report Type: 
  Country: None (occurrence: None)
  Receive Date: 20100308
  Receipt Date: 20100225
  Transmission Date: 20100710
  Serious: Yes (Other)
  Sender: FDA-Public Use
  Company Number: US-ASTRAZENECA-2009SE07765

PATIENT
  Age: 89 Year
  Sex: Female
  Weight: 75.7 kg

DRUGS (35)
  1. CRESTOR [Suspect]
     Indication: BLOOD CHOLESTEROL
     Route: 048
     Dates: start: 20080626
  2. CRESTOR [Suspect]
     Indication: BLOOD PRESSURE
     Route: 048
     Dates: start: 20080626
  3. CRESTOR [Suspect]
     Indication: DYSLIPIDAEMIA
     Route: 048
     Dates: start: 20080626
  4. CRESTOR [Suspect]
     Route: 048
     Dates: start: 20090101
  5. CRESTOR [Suspect]
     Route: 048
     Dates: start: 20090101
  6. CRESTOR [Suspect]
     Route: 048
     Dates: start: 20090101
  7. COUMADIN [Concomitant]
  8. ZOLPIDEM TARTRATE [Concomitant]
     Dates: start: 20080331
  9. ZOLPIDEM TARTRATE [Concomitant]
     Dates: start: 20080518
  10. ZOLPIDEM TARTRATE [Concomitant]
     Dates: start: 20080618
  11. ZOLPIDEM TARTRATE [Concomitant]
     Dates: start: 20080630
  12. ZOLPIDEM TARTRATE [Concomitant]
     Dates: start: 20080722
  13. ZOLPIDEM TARTRATE [Concomitant]
     Dates: start: 20080909
  14. DIGITEK [Concomitant]
     Dosage: 125 MCG
     Dates: start: 20080331
  15. NITROGLYCERIN [Concomitant]
     Dosage: 0.4 MG/HR
     Dates: start: 20080407
  16. NITROGLYCERIN [Concomitant]
     Dosage: 0.4 MG/HR
     Dates: start: 20080609
  17. NITROGLYCERIN [Concomitant]
     Dosage: 0.4 MG/HR
     Dates: start: 20080905
  18. METOPROLOL TARTRATE [Concomitant]
     Dates: start: 20080417
  19. METOPROLOL TARTRATE [Concomitant]
     Dates: start: 20080626
  20. METOPROLOL TARTRATE [Concomitant]
     Dates: start: 20080905
  21. LANOXIN [Concomitant]
     Dates: start: 20080530
  22. LANOXIN [Concomitant]
     Dates: start: 20080626
  23. LANOXIN [Concomitant]
     Dates: start: 20080905
  24. FUROSEMIDE [Concomitant]
     Dates: start: 20080606
  25. FUROSEMIDE [Concomitant]
     Dates: start: 20080626
  26. FUROSEMIDE [Concomitant]
     Dates: start: 20080905
  27. SPIRONOLACTONE [Concomitant]
     Dates: start: 20080613
  28. SPIRONOLACTONE [Concomitant]
     Dates: start: 20080626
  29. SPIRONOLACTONE [Concomitant]
     Dates: start: 20080905
  30. DIOVAN [Concomitant]
     Dates: start: 20080626
  31. DIOVAN [Concomitant]
     Dates: start: 20080905
  32. WARFARIN SODIUM [Concomitant]
     Dates: start: 20080630
  33. MINITRAN [Concomitant]
     Dosage: 0.4 MG/HR
     Dates: start: 20080630
  34. METHYLPREDNISOLONE [Concomitant]
     Dates: start: 20080728
  35. AZITHROMYCIN [Concomitant]
     Dates: start: 20080728

REACTIONS (1)
  - TYPE 2 DIABETES MELLITUS [None]
